FAERS Safety Report 7099748-2 (Version None)
Quarter: 2010Q4

REPORT INFORMATION
  Report Type: 
  Country: None (occurrence: None)
  Receive Date: 20101112
  Receipt Date: 20101104
  Transmission Date: 20110411
  Serious: Yes (Hospitalization)
  Sender: FDA-Public Use
  Company Number: GB-ABBOTT-10P-167-0681492-01

PATIENT
  Sex: Female

DRUGS (3)
  1. HUMIRA [Suspect]
     Indication: CROHN'S DISEASE
     Route: 058
     Dates: start: 20090925
  2. PREDNISONE [Concomitant]
     Indication: CROHN'S DISEASE
     Dosage: REDUCING DOSE STARTING AT 30MG
     Dates: start: 20091031, end: 20091101
  3. LOPERAMIDE [Concomitant]
     Indication: GASTROINTESTINAL MOTILITY DISORDER
     Dates: start: 20090201

REACTIONS (1)
  - CROHN'S DISEASE [None]
